FAERS Safety Report 8917244 (Version 2)
Quarter: 2012Q4

REPORT INFORMATION
  Report Type: Report from Study
  Country: IE (occurrence: US)
  Receive Date: 20121119
  Receipt Date: 20121129
  Transmission Date: 20130627
  Serious: Yes (Other)
  Sender: FDA-Public Use
  Company Number: US-BRISTOL-MYERS SQUIBB COMPANY-17126855

PATIENT
  Age: 35 Year
  Sex: Male

DRUGS (9)
  1. REYATAZ [Suspect]
     Indication: HIV INFECTION
     Dosage: Inter^d: 12Nov12
     Route: 048
     Dates: start: 20120823
  2. NORVIR [Suspect]
     Indication: HIV INFECTION
     Dosage: Inter^d: 12Nov12
     Route: 048
     Dates: start: 20120823
  3. VIREAD [Suspect]
     Indication: HIV INFECTION
     Route: 048
     Dates: start: 20120823
  4. ISENTRESS [Suspect]
     Indication: HIV INFECTION
     Route: 048
     Dates: start: 20120823
  5. XYZAL [Concomitant]
     Dates: start: 20120820
  6. PEPCID AC [Concomitant]
     Dates: start: 20121025
  7. SUCRALFATE [Concomitant]
     Dates: start: 20121106
  8. OMEGA-3 [Concomitant]
     Dates: start: 20090709
  9. MULTIVITAMINS [Concomitant]
     Dates: start: 1995

REACTIONS (1)
  - Liver injury [Unknown]
